FAERS Safety Report 5304243-4 (Version None)
Quarter: 2007Q2

REPORT INFORMATION
  Report Type: 
  Country: None (occurrence: None)
  Receive Date: 20070423
  Receipt Date: 20070411
  Transmission Date: 20071010
  Serious: Yes (Hospitalization, Other)
  Sender: FDA-Public Use
  Company Number: PHEH2007US05095

PATIENT
  Age: 78 Year
  Sex: Female

DRUGS (1)
  1. ZELNORM [Suspect]
     Indication: CONSTIPATION
     Dosage: UNK, BID
     Route: 048
     Dates: start: 20040101, end: 20070411

REACTIONS (9)
  - DIZZINESS [None]
  - DYSGRAPHIA [None]
  - DYSPNOEA [None]
  - FALL [None]
  - IMPAIRED WORK ABILITY [None]
  - LOSS OF CONSCIOUSNESS [None]
  - WOUND [None]
  - WRIST FRACTURE [None]
  - WRIST SURGERY [None]
